FAERS Safety Report 17508279 (Version 1)
Quarter: 2020Q1

REPORT INFORMATION
  Report Type: Report from Study
  Country: None (occurrence: US)
  Receive Date: 20200305
  Receipt Date: 20200305
  Transmission Date: 20200409
  Serious: Yes (Hospitalization, Other)
  Sender: FDA-Public Use
  Company Number: US-ABBVIE-20K-163-3301980-00

PATIENT
  Age: 68 Year
  Sex: Female

DRUGS (1)
  1. HUMIRA [Suspect]
     Active Substance: ADALIMUMAB
     Indication: CROHN^S DISEASE
     Route: 058

REACTIONS (7)
  - Hip fracture [Unknown]
  - Diarrhoea [Unknown]
  - Intestinal obstruction [Unknown]
  - Fall [Unknown]
  - Nasopharyngitis [Unknown]
  - Injection site pain [Unknown]
  - Sinus disorder [Unknown]

NARRATIVE: CASE EVENT DATE: 201909
